FAERS Safety Report 10747005 (Version 2)
Quarter: 2015Q1

REPORT INFORMATION
  Report Type: Spontaneous
  Country: US (occurrence: US)
  Receive Date: 20150129
  Receipt Date: 20150206
  Transmission Date: 20150721
  Serious: Yes (Death, Hospitalization, Other)
  Sender: FDA-Public Use
  Company Number: US-MERCK-1501USA010179

PATIENT
  Age: 63 Year
  Sex: Male

DRUGS (11)
  1. PRINIVIL [Concomitant]
     Active Substance: LISINOPRIL
     Route: 048
  2. NOXAFIL [Suspect]
     Active Substance: POSACONAZOLE
     Dosage: UNK
     Route: 048
  3. JAKAFI [Interacting]
     Active Substance: RUXOLITINIB
     Indication: ACUTE MYELOID LEUKAEMIA
     Dosage: 15 MG, BID
     Route: 048
     Dates: start: 2014, end: 2014
  4. ISOSORBIDE MONONITRATE. [Concomitant]
     Active Substance: ISOSORBIDE MONONITRATE
     Route: 048
  5. METFORMIN [Concomitant]
     Active Substance: METFORMIN HYDROCHLORIDE
  6. ZOCOR [Concomitant]
     Active Substance: SIMVASTATIN
     Route: 048
  7. ACYCLOVIR. [Concomitant]
     Active Substance: ACYCLOVIR
  8. DILAUDID [Concomitant]
     Active Substance: HYDROMORPHONE HYDROCHLORIDE
  9. JAKAFI [Interacting]
     Active Substance: RUXOLITINIB
     Dosage: 10 MG, BID
     Route: 048
     Dates: start: 20140912, end: 20140923
  10. PEPCID [Concomitant]
     Active Substance: FAMOTIDINE
  11. CIPROFLOXACIN. [Concomitant]
     Active Substance: CIPROFLOXACIN

REACTIONS (9)
  - Staphylococcal sepsis [Fatal]
  - Acute myeloid leukaemia [Fatal]
  - Off label use [Unknown]
  - Drug interaction [Unknown]
  - Cardiac arrest [Fatal]
  - Platelet count decreased [Unknown]
  - Cholecystitis acute [Recovered/Resolved]
  - Febrile neutropenia [Unknown]
  - Chest pain [Unknown]

NARRATIVE: CASE EVENT DATE: 2014
